FAERS Safety Report 19582363 (Version 1)
Quarter: 2021Q3

REPORT INFORMATION
  Report Type: Spontaneous
  Country: US (occurrence: US)
  Receive Date: 20210720
  Receipt Date: 20210720
  Transmission Date: 20211014
  Serious: Yes (Other)
  Sender: FDA-Public Use
  Company Number: None

PATIENT
  Sex: Female

DRUGS (3)
  1. XELJANZ XR [Suspect]
     Active Substance: TOFACITINIB CITRATE
     Indication: PSORIATIC ARTHROPATHY
     Route: 048
     Dates: start: 20200127, end: 20210128
  2. ARAVA 20MG [Concomitant]
     Dates: start: 20191230, end: 20210720
  3. METHOTREXATE 10MG [Concomitant]
     Active Substance: METHOTREXATE
     Dates: start: 20210311, end: 20210617

REACTIONS (1)
  - Ageusia [None]
